FAERS Safety Report 25482743 (Version 1)
Quarter: 2025Q2

REPORT INFORMATION
  Report Type: Report from Study
  Country: GB (occurrence: GB)
  Receive Date: 20250626
  Receipt Date: 20250626
  Transmission Date: 20250717
  Serious: Yes (Other)
  Sender: SAMSUNG BIOEPIS
  Company Number: GB-SAMSUNG BIOEPIS-SB-2025-06537

PATIENT
  Age: 62 Year
  Sex: Female

DRUGS (1)
  1. ETANERCEPT [Suspect]
     Active Substance: ETANERCEPT
     Indication: Rheumatoid arthritis
     Route: 058
     Dates: start: 20241203

REACTIONS (6)
  - Pulmonary fibrosis [Unknown]
  - Rheumatoid arthritis [Unknown]
  - Cough [Unknown]
  - Mobility decreased [Unknown]
  - Peripheral swelling [Unknown]
  - Asthma [Unknown]
